FAERS Safety Report 7319567-9 (Version None)
Quarter: 2011Q1

REPORT INFORMATION
  Report Type: 
  Country: None (occurrence: None)
  Receive Date: 20110228
  Receipt Date: 20100524
  Transmission Date: 20110831
  Serious: No
  Sender: FDA-Public Use
  Company Number: A0861067A

PATIENT
  Age: 61 Year
  Sex: Male

DRUGS (6)
  1. PAXIL [Suspect]
     Indication: DEPRESSION
     Dosage: 40MG PER DAY
     Route: 048
     Dates: start: 20070101, end: 20100520
  2. AMLODIPINE [Suspect]
     Dosage: 10MG UNKNOWN
     Route: 065
     Dates: start: 20100201, end: 20100501
  3. AMBIEN [Concomitant]
  4. KLONOPIN [Concomitant]
  5. LAMICTAL [Suspect]
     Indication: BIPOLAR DISORDER
     Dosage: 200MG PER DAY
     Route: 048
     Dates: start: 20090501, end: 20100520
  6. DILTIAZEM [Suspect]
     Route: 048
     Dates: end: 20100522

REACTIONS (4)
  - RESTLESSNESS [None]
  - ARTHRALGIA [None]
  - IRRITABILITY [None]
  - OEDEMA PERIPHERAL [None]
